FAERS Safety Report 8561342-1 (Version None)
Quarter: 2012Q3

REPORT INFORMATION
  Report Type: 
  Country: None (occurrence: None)
  Receive Date: 20120802
  Receipt Date: 20120725
  Transmission Date: 20120928
  Serious: Yes (Hospitalization, Other)
  Sender: FDA-Public Use
  Company Number: AU-B.I. PHARMACEUTICALS,INC./RIDGEFIELD-2012-AU-01323AU

PATIENT
  Age: 70 Year

DRUGS (1)
  1. PRADAXA [Suspect]

REACTIONS (2)
  - PULMONARY EMBOLISM [None]
  - MESENTERIC HAEMORRHAGE [None]
